FAERS Safety Report 17670722 (Version 10)
Quarter: 2022Q1

REPORT INFORMATION
  Report Type: Spontaneous
  Country: US (occurrence: US)
  Receive Date: 20200415
  Receipt Date: 20220222
  Transmission Date: 20220423
  Serious: Yes (Hospitalization, Other)
  Sender: FDA-Public Use
  Company Number: US-SA-2020SA096126

PATIENT
  Age: 65 Year
  Sex: Female

DRUGS (4)
  1. DUPIXENT [Suspect]
     Active Substance: DUPILUMAB
     Indication: Dermatitis atopic
     Dosage: 600 MG, 1X
     Route: 058
     Dates: start: 202003, end: 202003
  2. DUPIXENT [Suspect]
     Active Substance: DUPILUMAB
     Indication: Dermatitis allergic
     Dosage: 300 MG, QOW
     Route: 058
     Dates: start: 202003
  3. DUPIXENT [Suspect]
     Active Substance: DUPILUMAB
     Indication: Dermatitis contact
     Dosage: 600 MG, 1X
     Route: 058
     Dates: start: 202105, end: 202105
  4. DUPIXENT [Suspect]
     Active Substance: DUPILUMAB
     Dosage: 300 MG, QOW
     Route: 058
     Dates: start: 2021

REACTIONS (17)
  - COVID-19 [Unknown]
  - SARS-CoV-2 test positive [Unknown]
  - Influenza like illness [Unknown]
  - Surgery [Unknown]
  - Pruritus [Unknown]
  - Skin disorder [Unknown]
  - Condition aggravated [Unknown]
  - Dry skin [Unknown]
  - Tooth infection [Unknown]
  - Rash macular [Unknown]
  - Rash [Unknown]
  - Nasopharyngitis [Unknown]
  - Weight decreased [Unknown]
  - Malaise [Unknown]
  - Influenza [Unknown]
  - Product use in unapproved indication [Unknown]
  - Product dose omission issue [Unknown]

NARRATIVE: CASE EVENT DATE: 20200101
